FAERS Safety Report 26176176 (Version 1)
Quarter: 2025Q4

REPORT INFORMATION
  Report Type: Spontaneous
  Country: US (occurrence: None)
  Receive Date: 20251218
  Receipt Date: 20251218
  Transmission Date: 20260117
  Serious: Yes (Other)
  Sender: FDA-CTU
  Company Number: None

PATIENT
  Age: 25 Year
  Sex: Female

DRUGS (1)
  1. KESIMPTA [Suspect]
     Active Substance: OFATUMUMAB
     Indication: Multiple sclerosis
     Dosage: OTHER FREQUENCY : ONCE A MONTH;
     Route: 058
     Dates: start: 20251031, end: 20251126

REACTIONS (5)
  - Adverse drug reaction [None]
  - Rash erythematous [None]
  - Immunodeficiency [None]
  - Nodule [None]
  - Inflammation [None]

NARRATIVE: CASE EVENT DATE: 20251126
